FAERS Safety Report 21617700 (Version 6)
Quarter: 2023Q1

REPORT INFORMATION
  Report Type: Report from Study
  Country: US (occurrence: US)
  Receive Date: 20221119
  Receipt Date: 20230210
  Transmission Date: 20230417
  Serious: No
  Sender: FDA-Public Use
  Company Number: US-002147023-NVSC2022US260733

PATIENT
  Sex: Female

DRUGS (1)
  1. PIQRAY [Suspect]
     Active Substance: ALPELISIB
     Indication: Product used for unknown indication
     Dosage: UNK
     Route: 065

REACTIONS (7)
  - Abdominal discomfort [Unknown]
  - Faeces soft [Unknown]
  - Stomatitis [Unknown]
  - Dry mouth [Unknown]
  - Anxiety [Unknown]
  - Wrong technique in product usage process [Unknown]
  - Product supply issue [Unknown]
